FAERS Safety Report 8980058 (Version 3)
Quarter: 2013Q3

REPORT INFORMATION
  Report Type: Report from Study
  Country: US (occurrence: US)
  Receive Date: 20121221
  Receipt Date: 20130912
  Transmission Date: 20140515
  Serious: Yes (Other)
  Sender: FDA-Public Use
  Company Number: PHHO2012US018245

PATIENT
  Age: 45 Year
  Sex: Female
  Weight: 83.9 kg

DRUGS (1)
  1. FTY 720 [Suspect]
     Indication: MULTIPLE SCLEROSIS
     Dosage: 0.5 MG, QD
     Route: 048
     Dates: start: 20121127, end: 20121209

REACTIONS (1)
  - Breast cancer [Not Recovered/Not Resolved]
